FAERS Safety Report 14294964 (Version 2)
Quarter: 2018Q2

REPORT INFORMATION
  Report Type: Spontaneous
  Country: GB (occurrence: GB)
  Receive Date: 20171218
  Receipt Date: 20180427
  Transmission Date: 20180711
  Serious: Yes (Other)
  Sender: FDA-Public Use
  Company Number: GB-009507513-1712GBR004561

PATIENT
  Age: 61 Year
  Sex: Male
  Weight: 90 kg

DRUGS (13)
  1. INSULIN GLARGINE [Concomitant]
     Active Substance: INSULIN GLARGINE
     Dosage: 1 DF, QD
     Route: 058
     Dates: start: 20151110
  2. METFORMIN [Concomitant]
     Active Substance: METFORMIN HYDROCHLORIDE
     Dosage: 2 DF,QD
     Dates: start: 20170131
  3. RAMIPRIL. [Concomitant]
     Active Substance: RAMIPRIL
     Dosage: 1 DF, QD
     Dates: start: 20170421
  4. LORATADINE. [Concomitant]
     Active Substance: LORATADINE
     Dosage: 1 DF,QD
     Dates: start: 20171031, end: 20171110
  5. CIALIS [Concomitant]
     Active Substance: TADALAFIL
     Dosage: 1 DF, AS DIRECTED
     Dates: start: 20170207
  6. TOSTRAN [Concomitant]
     Active Substance: TESTOSTERONE
     Dosage: APPLY EVERY MORNING AS DIRECTED
     Dates: start: 20170131
  7. SIMVASTATIN. [Suspect]
     Active Substance: SIMVASTATIN
     Dosage: 40 MG, UNK
     Route: 048
     Dates: start: 20170131
  8. ATORVASTATIN [Concomitant]
     Active Substance: ATORVASTATIN
     Dosage: 1 DF,QD
     Dates: start: 20171127
  9. CLARITHROMYCIN. [Concomitant]
     Active Substance: CLARITHROMYCIN
     Dosage: 1 DF, Q12H
     Dates: start: 20171020, end: 20171027
  10. AMOXICILLIN (+) CLAVULANATE POTASSIUM [Concomitant]
     Active Substance: AMOXICILLIN\CLAVULANATE POTASSIUM
     Dosage: 3 DF,QD
     Dates: start: 20171120, end: 20171127
  11. AMOXICILLIN. [Concomitant]
     Active Substance: AMOXICILLIN
     Dosage: 3 DF, QD
     Dates: start: 20171009, end: 20171014
  12. BISOPROLOL [Concomitant]
     Active Substance: BISOPROLOL
     Dosage: 1 DF, QD
     Dates: start: 20170131
  13. APIXABAN [Concomitant]
     Active Substance: APIXABAN
     Dosage: 2 DF,QD
     Dates: start: 20170131

REACTIONS (1)
  - Pain in extremity [Recovered/Resolved]

NARRATIVE: CASE EVENT DATE: 20171127
